FAERS Safety Report 4688051-3 (Version None)
Quarter: 2005Q2

REPORT INFORMATION
  Report Type: 
  Country: None (occurrence: None)
  Receive Date: 20050609
  Receipt Date: 20050527
  Transmission Date: 20051028
  Serious: Yes (Other)
  Sender: FDA-Public Use
  Company Number: 2005081316

PATIENT
  Sex: Male
  Weight: 82.5547 kg

DRUGS (15)
  1. CELEBREX [Suspect]
     Indication: BACK PAIN
     Dosage: 200 MG (200 MG 1 IN 1 D) ORAL
     Route: 048
  2. SALMON OIL (SALMON OIL) [Concomitant]
  3. VITAMIN C (VITAMIN C) [Concomitant]
  4. VITAMIN E [Concomitant]
  5. MULTIVITAMINS WITH MINERALS (MULTIVITAMINS WITH MINERALS) [Concomitant]
  6. GLUCOSAMINE W/CHONDROITIN SULFATES (ASCORBIC ACID, CHONDROITIN SULFATE [Concomitant]
  7. BETACAROTENE (BETACAROTENE) [Concomitant]
  8. MAGNESIUM CITRATE(MAGNESIUM CITRATE) [Concomitant]
  9. CO-Q-10(UBIDECARENONE) [Concomitant]
  10. CALCIUM (CALCIUM) [Concomitant]
  11. ASPIRIN [Concomitant]
  12. ALTACE [Concomitant]
  13. B COMPLEX (NICOTINAMIDE, PYRIDOXINE HYDROCHLORIDE, RIBOFLAVIN, THIAMIN [Concomitant]
  14. LESCOL [Concomitant]
  15. SELENIUM (SELENIUM) [Concomitant]

REACTIONS (7)
  - ARTHRALGIA [None]
  - BACK PAIN [None]
  - HYPOAESTHESIA [None]
  - JOINT CREPITATION [None]
  - SCIATICA [None]
  - SURGERY [None]
  - TREATMENT NONCOMPLIANCE [None]
